FAERS Safety Report 19680418 (Version 1)
Quarter: 2021Q3

REPORT INFORMATION
  Report Type: Spontaneous
  Country: US (occurrence: US)
  Receive Date: 20210810
  Receipt Date: 20210810
  Transmission Date: 20211014
  Serious: No
  Sender: FDA-Public Use
  Company Number: US-GLAXOSMITHKLINE-US2021168145

PATIENT
  Age: 86 Year
  Sex: Female

DRUGS (1)
  1. BREO ELLIPTA [Suspect]
     Active Substance: FLUTICASONE FUROATE\VILANTEROL TRIFENATATE
     Indication: ASTHMA
     Dosage: 1 PUFF(S), QD, 200MCG/25MCG
     Route: 055
     Dates: start: 20210803, end: 20210806

REACTIONS (4)
  - Muscle spasms [Unknown]
  - Oropharyngeal discomfort [Unknown]
  - Drug hypersensitivity [Recovered/Resolved]
  - Asthma [Unknown]

NARRATIVE: CASE EVENT DATE: 20210803
